FAERS Safety Report 6839259-X (Version None)
Quarter: 2010Q3

REPORT INFORMATION
  Report Type: 
  Country: None (occurrence: None)
  Receive Date: 20100709
  Receipt Date: 20100621
  Transmission Date: 20110219
  Serious: Yes (Life-Threatening, Hospitalization, Other)
  Sender: FDA-Public Use
  Company Number: GB-ACCORD-005381

PATIENT
  Age: 46 Year
  Sex: Female

DRUGS (17)
  1. SIMVASTATIN [Suspect]
     Indication: PRODUCT USED FOR UNKNOWN INDICATION
     Dosage: 40.00 MG-1.00-PER-1.0 DAYS; ORAL
     Route: 048
  2. FUSIDIC ACID [Suspect]
     Indication: ARTHRITIS BACTERIAL
     Dosage: 500.00-MG-3.00PER-1.0DAYS;
  3. ALFACALCIDOL [Concomitant]
  4. ALUMINUM HYDROXIDE GEL [Concomitant]
  5. ASPIRIN [Concomitant]
  6. CALCIUM ACETATE [Concomitant]
  7. CLONAZEPAM [Concomitant]
  8. DILTIAZEM HYDROCHLORIDE [Concomitant]
  9. ERYTHROPOETIN [Concomitant]
  10. FLOXACILLIN SODIUM [Concomitant]
  11. GENTAMICIN [Concomitant]
  12. IRON SUCROSE [Concomitant]
  13. MIXTARD HUMAN 70/30 [Concomitant]
  14. NICORANDIL [Concomitant]
  15. PENCILLIN V [Concomitant]
  16. SERTRALINE HYDROCHLORIDE [Concomitant]
  17. WARFARIN SODIUM [Concomitant]

REACTIONS (2)
  - DRUG INTERACTION [None]
  - RHABDOMYOLYSIS [None]
